FAERS Safety Report 4873894-3 (Version None)
Quarter: 2006Q1

REPORT INFORMATION
  Report Type: 
  Country: None (occurrence: None)
  Receive Date: 20060106
  Receipt Date: 20051228
  Transmission Date: 20060701
  Serious: Yes (Hospitalization)
  Sender: FDA-Public Use
  Company Number: US-JNJFOC-20051100484

PATIENT
  Sex: Female
  Weight: 74.84 kg

DRUGS (19)
  1. REMICADE [Suspect]
     Route: 042
  2. REMICADE [Suspect]
     Route: 042
  3. REMICADE [Suspect]
     Dosage: THE PATIENT RECEIVED SEVERAL INFUSIONS IN 2005
     Route: 042
  4. REMICADE [Suspect]
     Indication: CROHN'S DISEASE
     Route: 042
  5. PENTASA [Concomitant]
     Indication: CROHN'S DISEASE
  6. SYNTHROID [Concomitant]
  7. FERROUS [Concomitant]
  8. PROTONIX [Concomitant]
     Indication: CROHN'S DISEASE
  9. PROTONIX [Concomitant]
     Indication: GASTROINTESTINAL DISORDER
  10. EFFEXOR [Concomitant]
     Indication: DEPRESSION
  11. MEGESTROL ACETATE [Concomitant]
  12. WELLBUTRIN [Concomitant]
     Indication: DEPRESSION
  13. XANAX [Concomitant]
     Indication: ANXIETY
  14. PERCOCET [Concomitant]
  15. PERCOCET [Concomitant]
     Indication: PAIN
  16. LOMOTIL [Concomitant]
  17. BENTYL [Concomitant]
  18. RESTORIL [Concomitant]
     Indication: SLEEP DISORDER THERAPY
  19. NEURONTIN [Concomitant]

REACTIONS (4)
  - DYSPLASIA [None]
  - PYREXIA [None]
  - THYROID GLAND CANCER [None]
  - UTERINE MASS [None]
